FAERS Safety Report 5305638-5 (Version None)
Quarter: 2007Q2

REPORT INFORMATION
  Report Type: 
  Country: None (occurrence: None)
  Receive Date: 20070424
  Receipt Date: 20070413
  Transmission Date: 20071010
  Serious: Yes (Life-Threatening)
  Sender: FDA-Public Use
  Company Number: HQWYE560113APR07

PATIENT
  Sex: Female

DRUGS (2)
  1. AMIODAR [Suspect]
     Indication: ATRIAL FIBRILLATION
     Dosage: 300 MG
     Route: 042
     Dates: start: 20070322, end: 20070322
  2. AMIODAR [Suspect]
     Dosage: UNSPECIFIED
     Route: 042
     Dates: start: 20070322, end: 20070322

REACTIONS (2)
  - ANAPHYLACTOID REACTION [None]
  - HYPERTENSION [None]
